FAERS Safety Report 24274185 (Version 1)
Quarter: 2024Q3

REPORT INFORMATION
  Report Type: Spontaneous
  Country: DE (occurrence: DE)
  Receive Date: 20240902
  Receipt Date: 20240902
  Transmission Date: 20241017
  Serious: Yes (Life-Threatening)
  Sender: BAUSCH AND LOMB
  Company Number: DE-HALEON-2193682

PATIENT

DRUGS (15)
  1. ACYCLOVIR [Suspect]
     Active Substance: ACYCLOVIR
     Indication: Product used for unknown indication
     Dosage: AT EACH CYCLE
     Route: 065
  2. GRANULOCYTE COLONY-STIMULATING FACTOR NOS [Suspect]
     Active Substance: GRANULOCYTE COLONY-STIMULATING FACTOR NOS
     Indication: Prophylaxis
     Dosage: AT EACH CYCLE
     Route: 065
  3. IFOSFAMIDE [Suspect]
     Active Substance: IFOSFAMIDE
     Indication: Central nervous system lymphoma
     Dosage: 800 MG/M2, EVERY 2 WEEKS (CYCLE 1-3)
     Route: 042
  4. IFOSFAMIDE [Suspect]
     Active Substance: IFOSFAMIDE
     Dosage: 800 MG/M2, EVERY 2 WEEKS (CYCLE 5)
     Route: 042
  5. METHOTREXATE [Suspect]
     Active Substance: METHOTREXATE
     Indication: Central nervous system lymphoma
     Dosage: 2.5 MG, EVERY 2 WEEKS (CYCLE 5)
     Route: 065
  6. METHOTREXATE [Suspect]
     Active Substance: METHOTREXATE
     Dosage: 4000 MG/M2, EVERY 2 WEEKS (CYCLE 5)
     Route: 042
  7. METHOTREXATE [Suspect]
     Active Substance: METHOTREXATE
     Dosage: 2.5 MG, EVERY 3 WEEKS (CYCLE 4 AND 6)
     Route: 065
  8. METHOTREXATE [Suspect]
     Active Substance: METHOTREXATE
     Dosage: 4000 MG/M2, EVERY 2 WEEKS (CYCLE 1-3)
     Route: 042
  9. CYTARABINE [Suspect]
     Active Substance: CYTARABINE
     Indication: Central nervous system lymphoma
     Dosage: 10 MG, EVERY 3 WEEKS (CYCLE 4+6)
     Route: 065
  10. CYTARABINE [Suspect]
     Active Substance: CYTARABINE
     Dosage: 10 MG, EVERY 2 WEEKS (CYCLE 5)
     Route: 065
  11. CYTARABINE [Suspect]
     Active Substance: CYTARABINE
     Dosage: 3000 MG/M2, EVERY 3 WEEKS (CYCLE 4 AND 6)
     Route: 042
  12. SULFAMETHOXAZOLE\TRIMETHOPRIM [Suspect]
     Active Substance: SULFAMETHOXAZOLE\TRIMETHOPRIM
     Indication: Product used for unknown indication
     Dosage: AT EACH CYCLE
     Route: 065
  13. RITUXIMAB [Suspect]
     Active Substance: RITUXIMAB
     Indication: Central nervous system lymphoma
     Dosage: 375 MG/M2, EVERY 2 WEEKS (CYCLE 1-3)
     Route: 042
  14. PREDNISOLONE [Suspect]
     Active Substance: PREDNISOLONE
     Indication: Central nervous system lymphoma
     Dosage: 3 MG, EVERY 2 WEEKS (CYCLE 5) VIA INTRACEREBROVENTICULAR ROUTE (ICV)
     Route: 065
  15. PREDNISOLONE [Suspect]
     Active Substance: PREDNISOLONE
     Dosage: 3 MG, EVERY 3 WEEKS (CYCLE 4+6) VIA INTRACEREBROVENTICULAR ROUTE (ICV)
     Route: 065

REACTIONS (1)
  - Blood potassium decreased [Unknown]
